FAERS Safety Report 5750177-0 (Version None)
Quarter: 2008Q2

REPORT INFORMATION
  Report Type: 
  Country: None (occurrence: None)
  Receive Date: 20080527
  Receipt Date: 20080514
  Transmission Date: 20081010
  Serious: Yes (Hospitalization)
  Sender: FDA-Public Use
  Company Number: US-ELI_LILLY_AND_COMPANY-US200804000985

PATIENT
  Sex: Female
  Weight: 68.027 kg

DRUGS (5)
  1. FORTEO [Suspect]
     Indication: OSTEOPOROSIS
     Dosage: 20 UG, DAILY (1/D)
     Dates: start: 20061001, end: 20070226
  2. COUMADIN [Concomitant]
  3. BETA BLOCKING AGENTS [Concomitant]
  4. SYNTHROID [Concomitant]
  5. MULTI-VITAMIN [Concomitant]

REACTIONS (6)
  - ANXIETY [None]
  - MOBILITY DECREASED [None]
  - NERVOUSNESS [None]
  - PULMONARY EMBOLISM [None]
  - SPINAL FRACTURE [None]
  - STENT PLACEMENT [None]
